FAERS Safety Report 12524624 (Version 2)
Quarter: 2019Q4

REPORT INFORMATION
  Report Type: Report from Study
  Country: CO (occurrence: CO)
  Receive Date: 20160704
  Receipt Date: 20191224
  Transmission Date: 20200122
  Serious: Yes (Other)
  Sender: FDA-Public Use
  Company Number: CO-JNJFOC-20160700894

PATIENT
  Age: 52 Year
  Sex: Female
  Weight: 41 kg

DRUGS (1)
  1. SIMPONI [Suspect]
     Active Substance: GOLIMUMAB
     Indication: ANKYLOSING SPONDYLITIS
     Dosage: THE PATIENT ADMINISTERED LAST DOSE ON 06-JUN-2016
     Route: 058
     Dates: start: 20140104

REACTIONS (3)
  - Tuberculin test positive [Not Recovered/Not Resolved]
  - Lung cyst [Unknown]
  - Pneumonia [Not Recovered/Not Resolved]

NARRATIVE: CASE EVENT DATE: 2016
